FAERS Safety Report 10082191 (Version 2)
Quarter: 2014Q2

REPORT INFORMATION
  Report Type: Spontaneous
  Country: IT (occurrence: IT)
  Receive Date: 20140416
  Receipt Date: 20140416
  Transmission Date: 20141212
  Serious: Yes (Hospitalization)
  Sender: FDA-Public Use
  Company Number: PHHY2014IT038240

PATIENT
  Age: 68 Year
  Sex: Female

DRUGS (2)
  1. TEGRETOL [Suspect]
     Indication: TRIGEMINAL NEURALGIA
     Dosage: 600 MG, DAILY
     Route: 048
     Dates: start: 20110101, end: 20140312
  2. TEGRETOL [Suspect]
     Dosage: 400 MG, DAILY
     Dates: start: 20140314

REACTIONS (2)
  - Sopor [Recovered/Resolved]
  - Urinary retention [Recovered/Resolved]
